FAERS Safety Report 8237924-3 (Version None)
Quarter: 2012Q1

REPORT INFORMATION
  Report Type: 
  Country: None (occurrence: None)
  Receive Date: 20120327
  Receipt Date: 20120322
  Transmission Date: 20120608
  Serious: Yes (Death)
  Sender: FDA-Public Use
  Company Number: US-TEVA-329429USA

PATIENT
  Sex: Male

DRUGS (4)
  1. CAPECITABINE [Concomitant]
  2. ACTIQ [Suspect]
     Indication: BREAKTHROUGH PAIN
     Dosage: 1200 MICROGRAM;
     Route: 002
     Dates: start: 20110101, end: 20120318
  3. OXYCODONE HYDROCHLORIDE [Concomitant]
  4. OXYCODONE HCL [Concomitant]

REACTIONS (1)
  - HEPATIC FAILURE [None]
